FAERS Safety Report 23381610 (Version 1)
Quarter: 2024Q1

REPORT INFORMATION
  Report Type: Spontaneous
  Country: US (occurrence: US)
  Receive Date: 20240109
  Receipt Date: 20240109
  Transmission Date: 20240410
  Serious: Yes (Hospitalization)
  Sender: FDA-Public Use
  Company Number: US-GSKCCFUS-Case-01896411_AE-105784

PATIENT

DRUGS (1)
  1. ADVAIR DISKUS [Suspect]
     Active Substance: FLUTICASONE PROPIONATE\SALMETEROL XINAFOATE
     Indication: Asthma
     Dosage: UNK 250 MCG/50 MCG
     Route: 055

REACTIONS (3)
  - Parenteral nutrition [Unknown]
  - Feeding disorder [Unknown]
  - Gait inability [Unknown]
